FAERS Safety Report 8458026-7 (Version None)
Quarter: 2012Q2

REPORT INFORMATION
  Report Type: 
  Country: None (occurrence: None)
  Receive Date: 20120615
  Receipt Date: 20120601
  Transmission Date: 20120825
  Serious: Yes (Other)
  Sender: FDA-Public Use
  Company Number: 2012MA007095

PATIENT
  Age: 60 Year
  Sex: Male

DRUGS (5)
  1. MIRTAZAPINE [Suspect]
     Dosage: 45 MG;X1
     Dates: start: 20111227
  2. LORAZEPAM [Suspect]
     Dosage: 3.75 MG;QD
     Dates: start: 20111227
  3. SEROQUEL [Suspect]
     Dosage: 350 MG;QD
     Dates: start: 20111227, end: 20111230
  4. OLANZAPINE [Concomitant]
  5. AKINETON [Concomitant]

REACTIONS (2)
  - DIPLOPIA [None]
  - VISUAL IMPAIRMENT [None]
